FAERS Safety Report 19156185 (Version 1)
Quarter: 2021Q2

REPORT INFORMATION
  Report Type: Spontaneous
  Country: DE (occurrence: DE)
  Receive Date: 20210420
  Receipt Date: 20210420
  Transmission Date: 20210717
  Serious: Yes (Other)
  Sender: FDA-Public Use
  Company Number: DE-SUN PHARMACEUTICAL INDUSTRIES LTD-2021RR-291500

PATIENT
  Sex: Female

DRUGS (3)
  1. ANASTROZOLE. [Suspect]
     Active Substance: ANASTROZOLE
     Indication: BREAST CANCER METASTATIC
     Dosage: 1.5 MILLIGRAM, 1.5 MG DAILY
     Route: 048
     Dates: start: 20200909
  2. KISQALI [Suspect]
     Active Substance: RIBOCICLIB
     Dosage: 600 MILLIGRAM, 600 MG, (21 DAYS INTAKE, 7 DAYS PAUSE)
     Route: 048
     Dates: start: 20200909, end: 20200922
  3. KISQALI [Suspect]
     Active Substance: RIBOCICLIB
     Indication: BREAST CANCER METASTATIC
     Dosage: 400 MILLIGRAM, 400 MG, (21 DAYS INTAKE, 7 DAYS PAUSE)
     Route: 048
     Dates: start: 20201104, end: 20201107

REACTIONS (3)
  - Nausea [Recovered/Resolved]
  - Liver function test increased [Recovered/Resolved]
  - Neutropenia [Recovered/Resolved]

NARRATIVE: CASE EVENT DATE: 20200909
